FAERS Safety Report 8273095 (Version 3)
Quarter: 2013Q2

REPORT INFORMATION
  Report Type: Spontaneous
  Country: US (occurrence: None)
  Receive Date: 20111122
  Receipt Date: 20120703
  Transmission Date: 20140414
  Serious: No
  Sender: FDA-Public Use
  Company Number: PHHY2011US65006

PATIENT
  Age: 54 Year
  Sex: Male

DRUGS (6)
  1. GILENYA [Suspect]
     Indication: MULTIPLE SCLEROSIS
     Route: 048
     Dates: start: 20110714
  2. METAMUCIL [Concomitant]
  3. PROBIOTICS (NO INGREDIENTS/SUBSTANCES) [Concomitant]
  4. SINGULAR (MONTELUKAST) [Concomitant]
  5. MULTI-VIT (VITAMINS NOS) [Concomitant]
  6. GLUCOSAMINE W/CHONDROITIN (CHONDROITIN SULFATE, GLUCOSAMINE) [Concomitant]

REACTIONS (1)
  - FATIGUE [None]
